FAERS Safety Report 21493067 (Version 2)
Quarter: 2022Q4

REPORT INFORMATION
  Report Type: Spontaneous
  Country: US (occurrence: US)
  Receive Date: 20221021
  Receipt Date: 20221212
  Transmission Date: 20230113
  Serious: No
  Sender: FDA-Public Use
  Company Number: US-ALNYLAM PHARMACEUTICALS, INC.-ALN-2022-003666

PATIENT

DRUGS (3)
  1. ONPATTRO [Suspect]
     Active Substance: PATISIRAN SODIUM
     Indication: Neuropathy peripheral
     Dosage: UNK, Q3W
     Route: 042
     Dates: start: 20200923
  2. ONPATTRO [Suspect]
     Active Substance: PATISIRAN SODIUM
     Indication: Hereditary neuropathic amyloidosis
     Dosage: UNK, Q3W
     Route: 042
     Dates: start: 202010
  3. ONPATTRO [Suspect]
     Active Substance: PATISIRAN SODIUM
     Dosage: UNK, Q3W
     Route: 042
     Dates: start: 20221112

REACTIONS (4)
  - Dizziness [Not Recovered/Not Resolved]
  - Peripheral swelling [Not Recovered/Not Resolved]
  - Memory impairment [Not Recovered/Not Resolved]
  - Vertigo [Unknown]
